FAERS Safety Report 15593550 (Version 2)
Quarter: 2018Q4

REPORT INFORMATION
  Report Type: Spontaneous
  Country: FR (occurrence: FR)
  Receive Date: 20181106
  Receipt Date: 20181120
  Transmission Date: 20190205
  Serious: Yes (Hospitalization)
  Sender: FDA-Public Use
  Company Number: FR-PURDUE PHARMA-GBR-2018-0061167

PATIENT
  Age: 22 Year
  Sex: Male

DRUGS (2)
  1. ALCOOL MODIFIE [Suspect]
     Active Substance: ALCOHOL
     Indication: PRODUCT USED FOR UNKNOWN INDICATION
     Dosage: UNK
     Route: 065
     Dates: start: 20180412, end: 20180413
  2. OXYNORMORO [Suspect]
     Active Substance: OXYCODONE HYDROCHLORIDE
     Indication: PRODUCT USED FOR UNKNOWN INDICATION
     Dosage: 20 ? 30 MG [30 MG TOTAL]
     Route: 048
     Dates: start: 20180413, end: 20180413

REACTIONS (4)
  - Head injury [Recovered/Resolved]
  - Drug abuse [Unknown]
  - Loss of consciousness [Recovered/Resolved]
  - Substance abuser [Unknown]

NARRATIVE: CASE EVENT DATE: 20180413
